FAERS Safety Report 8906306 (Version 1)
Quarter: 2012Q4

REPORT INFORMATION
  Report Type: Spontaneous
  Country: GB (occurrence: None)
  Receive Date: 20121107
  Receipt Date: 20121107
  Transmission Date: 20130627
  Serious: Yes (Other)
  Sender: FDA-Public Use
  Company Number: AUR-APL-2012-04583

PATIENT
  Age: 49 Year
  Sex: Female
  Weight: 85 kg

DRUGS (6)
  1. BISOPROLOL [Suspect]
     Indication: DRUG USE FOR UNKNOWN INDICATION
     Dates: start: 20120911
  2. AMLODIPINE (AMLODIPINE) [Concomitant]
  3. ATENOLOL [Concomitant]
  4. BENDROFLUMETHIAZIDE [Concomitant]
  5. CLOBETASONE BUTYRATE [Concomitant]
  6. RAMIPRIL (RAMIPRIL) [Concomitant]

REACTIONS (1)
  - Nightmare [None]
